FAERS Safety Report 25602955 (Version 3)
Quarter: 2025Q3

REPORT INFORMATION
  Report Type: Spontaneous
  Country: US (occurrence: US)
  Receive Date: 20250724
  Receipt Date: 20250912
  Transmission Date: 20251020
  Serious: No
  Sender: PFIZER
  Company Number: US-PFIZER INC-202500148495

PATIENT
  Age: 13 Year
  Sex: Female
  Weight: 31.746 kg

DRUGS (1)
  1. GENOTROPIN [Suspect]
     Active Substance: SOMATROPIN
     Indication: Short stature

REACTIONS (4)
  - Device malfunction [Unknown]
  - Device mechanical issue [Unknown]
  - Device use error [Unknown]
  - Drug dose omission by device [Unknown]
